FAERS Safety Report 12566631 (Version 1)
Quarter: 2016Q3

REPORT INFORMATION
  Report Type: Spontaneous
  Country: US (occurrence: US)
  Receive Date: 20160718
  Receipt Date: 20160718
  Transmission Date: 20161109
  Serious: Yes (Hospitalization)
  Sender: FDA-Public Use
  Company Number: US-BAYER-2016-134763

PATIENT
  Age: 27 Year
  Sex: Female

DRUGS (10)
  1. VOLTAREN [Concomitant]
     Active Substance: DICLOFENAC SODIUM
  2. TYLENOL [Concomitant]
     Active Substance: ACETAMINOPHEN
     Indication: PAIN
  3. YASMIN [Suspect]
     Active Substance: DROSPIRENONE\ETHINYL ESTRADIOL
  4. DEMEROL [Concomitant]
     Active Substance: MEPERIDINE HYDROCHLORIDE
     Indication: PAIN
  5. AMBIEN [Concomitant]
     Active Substance: ZOLPIDEM TARTRATE
  6. PHENERGAN [Concomitant]
     Active Substance: PROMETHAZINE HYDROCHLORIDE
  7. ULTRAM [Concomitant]
     Active Substance: TRAMADOL HYDROCHLORIDE
     Indication: PAIN
  8. LORTAB [Concomitant]
     Active Substance: ACETAMINOPHEN\HYDROCODONE BITARTRATE
     Indication: PAIN
  9. PRENATAL VITAMINS [Concomitant]
     Active Substance: VITAMINS
  10. FLEXERIL [Concomitant]
     Active Substance: CYCLOBENZAPRINE HYDROCHLORIDE

REACTIONS (1)
  - Deep vein thrombosis [None]

NARRATIVE: CASE EVENT DATE: 20060506
